FAERS Safety Report 7541784-3 (Version None)
Quarter: 2011Q2

REPORT INFORMATION
  Report Type: 
  Country: None (occurrence: None)
  Receive Date: 20110613
  Receipt Date: 20110601
  Transmission Date: 20111010
  Serious: Yes (Hospitalization)
  Sender: FDA-Public Use
  Company Number: FR-JNJFOC-20110509549

PATIENT
  Sex: Male

DRUGS (9)
  1. BACTRIM [Suspect]
     Indication: PNEUMOCYSTIS JIROVECI PNEUMONIA
     Route: 048
     Dates: start: 20110308, end: 20110401
  2. ABACAVIR SULFATE AND LAMIVUDINE [Suspect]
     Indication: HIV INFECTION
     Route: 048
     Dates: start: 20110308, end: 20110402
  3. OMEXEL [Concomitant]
     Route: 048
  4. PREZISTA [Suspect]
     Indication: HIV INFECTION
     Route: 048
     Dates: start: 20110308, end: 20110401
  5. LEDERFOLINE [Concomitant]
     Route: 048
  6. ENALAPRIL MALEATE [Concomitant]
  7. CETIRIZINE HCL [Concomitant]
     Indication: RASH
  8. NORVIR [Suspect]
     Indication: HIV INFECTION
     Route: 048
     Dates: start: 20110308, end: 20110401
  9. UVEDOSE [Concomitant]
     Route: 048

REACTIONS (3)
  - ERYTHEMA [None]
  - ANGIOEDEMA [None]
  - PHOTOSENSITIVITY REACTION [None]
